FAERS Safety Report 10251322 (Version 1)
Quarter: 2014Q2

REPORT INFORMATION
  Report Type: Spontaneous
  Country: US (occurrence: US)
  Receive Date: 20140621
  Receipt Date: 20140621
  Transmission Date: 20141212
  Serious: Yes (Other)
  Sender: FDA-Public Use
  Company Number: US-JNJCP-30000223997

PATIENT
  Sex: Female

DRUGS (1)
  1. NEUTROGENA WET SKIN SUNSCREEN SPRAY SPF30 [Suspect]
     Indication: PROPHYLAXIS
     Dosage: APPLIED LIBERALLY, HOURLY
     Route: 061
     Dates: start: 20140601, end: 20140601

REACTIONS (2)
  - Sunburn [Recovered/Resolved]
  - Dehydration [Recovered/Resolved]
